APPROVED DRUG PRODUCT: THYRO-TABS
Active Ingredient: LEVOTHYROXINE SODIUM
Strength: 0.075MG **See current Annual Edition, 1.8 Description of Special Situations, Levothyroxine Sodium **Federal Register determination that product was not discontinued or withdrawn for safety or effectiveness reasons**
Dosage Form/Route: TABLET;ORAL
Application: N021116 | Product #003 | TE Code: AB1,AB2,AB3,AB4
Applicant: ALVOGEN INC
Approved: Oct 24, 2002 | RLD: Yes | RS: No | Type: RX